FAERS Safety Report 5293569-9 (Version None)
Quarter: 2007Q2

REPORT INFORMATION
  Report Type: 
  Country: None (occurrence: None)
  Receive Date: 20070411
  Receipt Date: 20070403
  Transmission Date: 20071010
  Serious: Yes (Hospitalization)
  Sender: FDA-Public Use
  Company Number: US-GILEAD-2007-0011825

PATIENT
  Age: 28 Year
  Sex: Female
  Weight: 115.32 kg

DRUGS (1)
  1. TENOFOVIR DISOPROXIL FUMARATE GEL [Suspect]
     Route: 067
     Dates: start: 20070124, end: 20070312

REACTIONS (2)
  - HYSTERECTOMY [None]
  - OVARIAN CYST [None]
